FAERS Safety Report 5897822-7 (Version None)
Quarter: 2008Q3

REPORT INFORMATION
  Report Type: 
  Country: None (occurrence: None)
  Receive Date: 20080923
  Receipt Date: 20080908
  Transmission Date: 20090109
  Serious: Yes (Life-Threatening, Hospitalization)
  Sender: FDA-Public Use
  Company Number: 2008S1016289

PATIENT
  Age: 87 Year
  Sex: Female

DRUGS (6)
  1. WARFARIN SODIUM [Suspect]
     Indication: ATRIAL FIBRILLATION
  2. DIGOXIN [Suspect]
     Indication: ATRIAL FIBRILLATION
     Dosage: 0.125 MG
  3. THIAMAZOL (THIAMAZOLE) [Suspect]
     Indication: HYPERTHYROIDISM
     Dosage: 5 MG; DAILY
  4. FUROSEMIDE [Suspect]
     Dosage: 25 MG; 3 TIMES A DAY, 25 MG; DAILY
  5. PERINDOPRIL ERBUMINE [Suspect]
     Indication: ANGIOTENSIN CONVERTING ENZYME
     Dosage: 2 MG; DAILY
  6. SPIRONOLACTONE [Suspect]
     Dosage: 25 MG; DAILY

REACTIONS (36)
  - BRADYARRHYTHMIA [None]
  - BRADYCARDIA [None]
  - CARBOHYDRATE ANTIGEN 125 INCREASED [None]
  - CARDIAC MURMUR [None]
  - CATARACT [None]
  - CEREBRAL ISCHAEMIA [None]
  - CEREBROVASCULAR ACCIDENT [None]
  - CHOLECYSTECTOMY [None]
  - COGNITIVE DISORDER [None]
  - CONTUSION [None]
  - DEHYDRATION [None]
  - DELIRIUM [None]
  - DRUG INTERACTION [None]
  - FALL [None]
  - FIBRIN D DIMER INCREASED [None]
  - GASTRIC ULCER [None]
  - HAEMATURIA [None]
  - HAEMOPTYSIS [None]
  - HEPATOMEGALY [None]
  - HYPERKALAEMIA [None]
  - HYPERTHYROIDISM [None]
  - HYPOALBUMINAEMIA [None]
  - HYPOPHAGIA [None]
  - HYPOTENSION [None]
  - INTERNATIONAL NORMALISED RATIO INCREASED [None]
  - LACUNAR INFARCTION [None]
  - LEUKOCYTOSIS [None]
  - MELAENA [None]
  - MOBILITY DECREASED [None]
  - NORMOCHROMIC NORMOCYTIC ANAEMIA [None]
  - REFUSAL OF TREATMENT BY RELATIVE [None]
  - RENAL FAILURE [None]
  - RENAL IMPAIRMENT [None]
  - RESPIRATORY RATE INCREASED [None]
  - THERAPEUTIC AGENT TOXICITY [None]
  - URINARY INCONTINENCE [None]
